FAERS Safety Report 21498217 (Version 1)
Quarter: 2022Q4

REPORT INFORMATION
  Report Type: Report from Study
  Country: CH (occurrence: CH)
  Receive Date: 20221024
  Receipt Date: 20221024
  Transmission Date: 20230113
  Serious: Yes (Other)
  Sender: FDA-Public Use
  Company Number: CH-NEBO-PC009270

PATIENT

DRUGS (4)
  1. IRON ISOMALTOSIDE 1000 [Suspect]
     Active Substance: IRON ISOMALTOSIDE 1000
     Indication: Iron deficiency
     Route: 050
     Dates: start: 20220419, end: 20220419
  2. CHOLECALCIFEROL [Concomitant]
     Active Substance: CHOLECALCIFEROL
     Indication: Product used for unknown indication
     Route: 050
     Dates: start: 20220216
  3. ELEVIT [MINERALS NOS;VITAMINS NOS] [Concomitant]
     Indication: Product used for unknown indication
     Route: 050
     Dates: start: 20211228
  4. MAGNESIUM [MAGNESIUM CITRATE;MAGNESIUM GLUTAM [Concomitant]
     Indication: Product used for unknown indication
     Route: 050
     Dates: start: 20211228

REACTIONS (2)
  - Foetal acidosis [Unknown]
  - Foetal exposure during pregnancy [Recovered/Resolved]

NARRATIVE: CASE EVENT DATE: 20220419
